FAERS Safety Report 16050274 (Version 1)
Quarter: 2019Q1

REPORT INFORMATION
  Report Type: Spontaneous
  Country: SE (occurrence: SE)
  Receive Date: 20190308
  Receipt Date: 20190308
  Transmission Date: 20190418
  Serious: Yes (Hospitalization)
  Sender: FDA-Public Use
  Company Number: SE-TEVA-2019-SE-1020238

PATIENT
  Age: 14 Year
  Sex: Female
  Weight: 60 kg

DRUGS (4)
  1. ATARAX [Suspect]
     Active Substance: HYDROXYZINE HYDROCHLORIDE
     Dosage: ^12,5^
     Route: 065
  2. TETRALYSAL (LYMECYCLINE) [Suspect]
     Active Substance: LYMECYCLINE
     Route: 065
  3. COCILLANA-ETYFIN [Suspect]
     Active Substance: ETHYLMORPHINE HYDROCHLORIDE\HERBALS
     Dosage: ^APPROX. 100 ML ^
     Route: 048
     Dates: start: 20161107, end: 20161107
  4. SERTRALINE [Suspect]
     Active Substance: SERTRALINE HYDROCHLORIDE
     Dosage: ^250^
     Route: 065

REACTIONS (4)
  - Heart rate increased [Recovering/Resolving]
  - Intentional overdose [Unknown]
  - Tremor [Unknown]
  - Intentional self-injury [Unknown]

NARRATIVE: CASE EVENT DATE: 20161107
